FAERS Safety Report 8263208-3 (Version None)
Quarter: 2012Q2

REPORT INFORMATION
  Report Type: 
  Country: None (occurrence: None)
  Receive Date: 20120405
  Receipt Date: 20120402
  Transmission Date: 20120825
  Serious: No
  Sender: FDA-Public Use
  Company Number: US-PFIZER INC-2012084037

PATIENT
  Age: 65 Year
  Sex: Female

DRUGS (2)
  1. CELEBREX [Suspect]
     Indication: NECK PAIN
     Dosage: UNK
  2. CELEBREX [Suspect]
     Indication: MIGRAINE

REACTIONS (3)
  - ANXIETY [None]
  - FEELING ABNORMAL [None]
  - ABDOMINAL DISCOMFORT [None]
